FAERS Safety Report 13964471 (Version 1)
Quarter: 2017Q3

REPORT INFORMATION
  Report Type: Spontaneous
  Country: US (occurrence: US)
  Receive Date: 20170913
  Receipt Date: 20170913
  Transmission Date: 20171128
  Serious: Yes (Other)
  Sender: FDA-Public Use
  Company Number: None

PATIENT
  Age: 41 Year
  Sex: Female
  Weight: 60.75 kg

DRUGS (6)
  1. VITAMIN B12 [Concomitant]
     Active Substance: CYANOCOBALAMIN
  2. FLONASE [Concomitant]
     Active Substance: FLUTICASONE PROPIONATE
  3. SERTRALINE HYDROCHLORIDE TABLETS USP 25 MG [Suspect]
     Active Substance: SERTRALINE HYDROCHLORIDE
     Indication: ANXIETY
     Dosage: ?          QUANTITY:90 TABLET(S);?
     Route: 048
     Dates: start: 20170719, end: 20170726
  4. VITAMIN D [Concomitant]
     Active Substance: CHOLECALCIFEROL
  5. ZYRTEC [Concomitant]
     Active Substance: CETIRIZINE HYDROCHLORIDE
  6. ZADITOR EYE DROPS [Concomitant]

REACTIONS (3)
  - Product substitution issue [None]
  - Panic attack [None]
  - Impaired work ability [None]

NARRATIVE: CASE EVENT DATE: 20170728
